FAERS Safety Report 7494798-6 (Version None)
Quarter: 2011Q2

REPORT INFORMATION
  Report Type: 
  Country: None (occurrence: None)
  Receive Date: 20110520
  Receipt Date: 20110511
  Transmission Date: 20111010
  Serious: Yes (Hospitalization)
  Sender: FDA-Public Use
  Company Number: A0926990A

PATIENT
  Age: 85 Year
  Sex: Male

DRUGS (8)
  1. ZOLOFT [Concomitant]
  2. COUMADIN [Concomitant]
  3. LISINOPRIL [Concomitant]
  4. CONCURRENT MEDICATIONS [Concomitant]
  5. COMBIVENT [Concomitant]
  6. ADVAIR DISKUS 100/50 [Suspect]
     Indication: ASTHMA
     Dosage: 1PUFF TWICE PER DAY
     Route: 055
  7. COREG [Suspect]
  8. LASIX [Concomitant]

REACTIONS (4)
  - FALL [None]
  - BLOOD TEST ABNORMAL [None]
  - MEMORY IMPAIRMENT [None]
  - SPINAL FRACTURE [None]
